FAERS Safety Report 5747564-3 (Version None)
Quarter: 2008Q2

REPORT INFORMATION
  Report Type: 
  Country: None (occurrence: None)
  Receive Date: 20080523
  Receipt Date: 20080512
  Transmission Date: 20081010
  Serious: Yes (Hospitalization, Other)
  Sender: FDA-Public Use
  Company Number: US-ELI_LILLY_AND_COMPANY-US200805002252

PATIENT
  Sex: Female
  Weight: 31.746 kg

DRUGS (1)
  1. FORTEO [Suspect]
     Dosage: UNK, UNK
     Dates: start: 20070101

REACTIONS (4)
  - DYSPHAGIA [None]
  - MALAISE [None]
  - OESOPHAGEAL STENOSIS [None]
  - WEIGHT DECREASED [None]
